FAERS Safety Report 22606120 (Version 3)
Quarter: 2024Q2

REPORT INFORMATION
  Report Type: Spontaneous
  Country: JP (occurrence: JP)
  Receive Date: 20230615
  Receipt Date: 20240620
  Transmission Date: 20240716
  Serious: Yes (Hospitalization, Other)
  Sender: FDA-Public Use
  Company Number: JP-CHUGAI-2023020418

PATIENT
  Age: 44 Year
  Sex: Female

DRUGS (2)
  1. AVASTIN [Suspect]
     Active Substance: BEVACIZUMAB
     Indication: Cervix carcinoma
     Route: 065
  2. PEMBROLIZUMAB [Concomitant]
     Active Substance: PEMBROLIZUMAB
     Indication: Cervix carcinoma
     Dosage: UNK
     Route: 042

REACTIONS (5)
  - Small intestinal haemorrhage [Recovered/Resolved]
  - Fracture [Unknown]
  - Herpes zoster oticus [Recovered/Resolved]
  - Herpes zoster meningoencephalitis [Recovered/Resolved]
  - Intestinal perforation [Recovered/Resolved]
